FAERS Safety Report 24748776 (Version 1)
Quarter: 2024Q4

REPORT INFORMATION
  Report Type: Spontaneous
  Country: IT (occurrence: IT)
  Receive Date: 20241218
  Receipt Date: 20241218
  Transmission Date: 20250115
  Serious: Yes (Hospitalization)
  Sender: PFIZER
  Company Number: IT-ROCHE-10000061528

PATIENT
  Age: 69 Year
  Sex: Female
  Weight: 64 kg

DRUGS (25)
  1. RITUXIMAB [Suspect]
     Active Substance: RITUXIMAB
     Indication: Diffuse large B-cell lymphoma
     Dosage: ON 06/AUG/2024, SHE RECEIVED HER MOST RECENT DOSE OF RITUXIMAB (647.26 MG) PRIOR TO INFECTIOUS EVENT
     Route: 042
     Dates: start: 20240423
  2. RITUXIMAB [Suspect]
     Active Substance: RITUXIMAB
     Dosage: ON 06/AUG/2024, SHE RECEIVED HER MOST RECENT DOSE OF RITUXIMAB (647.26 MG) PRIOR TO INFECTIOUS EVENT
     Route: 042
  3. DOXORUBICIN HYDROCHLORIDE [Suspect]
     Active Substance: DOXORUBICIN HYDROCHLORIDE
     Indication: Diffuse large B-cell lymphoma
     Dosage: ON 06/AUG/2024, SHE RECEIVED HER MOST RECENT DOSE OF DOXORUBICIN (83.5 MG) PRIOR TO INFECTIOUS EVENT
     Route: 042
     Dates: start: 20240423
  4. POLATUZUMAB VEDOTIN [Suspect]
     Active Substance: POLATUZUMAB VEDOTIN
     Indication: Diffuse large B-cell lymphoma
     Dosage: ON 06/AUG/2024, SHE RECEIVED HER MOST RECENT DOSE OF POLATUZUMAB VEDOTIN (117 MG) PRIOR TO INFECTIOU
     Route: 042
     Dates: start: 20240423
  5. POLATUZUMAB VEDOTIN [Suspect]
     Active Substance: POLATUZUMAB VEDOTIN
     Dosage: ON 06/AUG/2024, SHE RECEIVED HER MOST RECENT DOSE OF POLATUZUMAB VEDOTIN (117 MG) PRIOR TO INFECTIOU
     Route: 042
  6. CYCLOPHOSPHAMIDE [Suspect]
     Active Substance: CYCLOPHOSPHAMIDE
     Indication: Diffuse large B-cell lymphoma
     Dosage: ON 06/AUG/2024, SHE RECEIVED HER MOST RECENT DOSE OF CYCLOPHOSPHAMIDE (1252.5 MG) PRIOR TO INFECTIOU
     Route: 042
     Dates: start: 20240423
  7. PREDNISONE [Suspect]
     Active Substance: PREDNISONE
     Indication: Diffuse large B-cell lymphoma
     Dosage: ON 06/AUG/2024, SHE RECEIVED HER MOST RECENT DOSE OF PREDNISONE (8 MG) PRIOR TO INFECTIOUS EVENT.
     Route: 048
     Dates: start: 20240423
  8. PANTOPRAZOLE SODIUM [Concomitant]
     Active Substance: PANTOPRAZOLE SODIUM
     Dosage: GIVEN FOR PROPHYLAXIS IS YES
     Route: 048
     Dates: start: 20240419
  9. ACYCLOVIR [Concomitant]
     Active Substance: ACYCLOVIR
     Dosage: GIVEN FOR PROPHYLAXIS IS YES
     Route: 048
     Dates: start: 20240424
  10. BACTRIM [Concomitant]
     Active Substance: SULFAMETHOXAZOLE\TRIMETHOPRIM
     Dosage: FREQ:.33 WK;
     Route: 048
     Dates: start: 20240424
  11. POTASSIUM CHLORIDE [Concomitant]
     Active Substance: POTASSIUM CHLORIDE
     Dosage: FREQ:.5 D;DRUG DOSE FIRST ADMINISTERED IS 1 CAPSULEGIVEN FOR PROPHYLAXIS IS YES
     Route: 048
     Dates: start: 20240424
  12. CIPROFLOXACIN\FLUOCINOLONE ACETONIDE [Concomitant]
     Active Substance: CIPROFLOXACIN\FLUOCINOLONE ACETONIDE
     Indication: Ear pain
     Dosage: MEDICATION DOSE UNIT GTT
     Route: 061
     Dates: start: 202306
  13. ACETYLCYSTEINE [Concomitant]
     Active Substance: ACETYLCYSTEINE
     Dosage: GIVEN FOR PROPHYLAXIS IS YES
     Route: 048
     Dates: start: 20240625
  14. FILGRASTIM [Concomitant]
     Active Substance: FILGRASTIM
     Dosage: MEDICATION DOSE 1 AMPULE
     Route: 058
     Dates: start: 20240711, end: 20240717
  15. FILGRASTIM [Concomitant]
     Active Substance: FILGRASTIM
     Dosage: DRUG DOSE FIRST ADMINISTERED IS 1 AMPULE
     Route: 058
     Dates: start: 20240807
  16. FILGRASTIM [Concomitant]
     Active Substance: FILGRASTIM
     Dosage: DRUG DOSE FIRST ADMINISTERED IS 1 AMPULE
     Route: 058
     Dates: start: 20240816, end: 20240819
  17. CETIRIZINE [Concomitant]
     Active Substance: CETIRIZINE HYDROCHLORIDE
     Dosage: 10 MG, 1X/DAY
     Route: 048
     Dates: start: 20240806, end: 20240806
  18. CLOTRIMAZOLE [Concomitant]
     Active Substance: CLOTRIMAZOLE
     Dosage: MEDICATION DOSE 2 PUFF
     Dates: start: 20240522
  19. ACETAMINOPHEN [Concomitant]
     Active Substance: ACETAMINOPHEN
     Dosage: 1000 MG, 1X/DAY
     Route: 048
     Dates: start: 20240806, end: 20240806
  20. RIOPAN [DIMETICONE;MAGALDRATE] [Concomitant]
     Dosage: MEDICATION DOSE 1 OTHER
     Route: 048
     Dates: start: 20240603
  21. ONDANSETRON [Concomitant]
     Active Substance: ONDANSETRON
     Dosage: 8 MG, 1X/DAY
     Route: 042
     Dates: start: 20240806, end: 20240806
  22. ENOXAPARIN [Concomitant]
     Active Substance: ENOXAPARIN
     Indication: Deep vein thrombosis
     Dosage: MEDICATION DOSE 4000 U
     Route: 058
     Dates: start: 20240813, end: 20240902
  23. AMOXICILLIN\CLAVULANIC ACID [Concomitant]
     Active Substance: AMOXICILLIN\CLAVULANIC ACID
     Indication: Febrile neutropenia
     Dosage: FREQ:.33 D;
     Route: 048
     Dates: start: 20240816, end: 20240820
  24. AZITHROMYCIN [Concomitant]
     Active Substance: AZITHROMYCIN
     Indication: Febrile neutropenia
     Dosage: 500 MG, 1X/DAY
     Route: 048
     Dates: start: 20240816, end: 20240818
  25. PIPERACILLIN AND TAZOBACTAM [Concomitant]
     Active Substance: PIPERACILLIN SODIUM\TAZOBACTAM SODIUM
     Dosage: FREQ:.25 D;
     Route: 042
     Dates: start: 20240816, end: 20240822

REACTIONS (3)
  - Febrile neutropenia [Recovered/Resolved]
  - Product use issue [Unknown]
  - Off label use [Unknown]

NARRATIVE: CASE EVENT DATE: 20240423
